FAERS Safety Report 17326926 (Version 1)
Quarter: 2020Q1

REPORT INFORMATION
  Report Type: Spontaneous
  Country: US (occurrence: US)
  Receive Date: 20200127
  Receipt Date: 20200127
  Transmission Date: 20200409
  Serious: No
  Sender: FDA-Public Use
  Company Number: US-REGENERON PHARMACEUTICALS, INC.-2019-33283

PATIENT

DRUGS (1)
  1. EYLEA [Suspect]
     Active Substance: AFLIBERCEPT
     Indication: DIABETIC RETINAL OEDEMA
     Dosage: 2 MG IN 0.05ML IN RIGHT EYE EVERY 4-5 WEEKS
     Route: 031
     Dates: start: 20190422

REACTIONS (2)
  - Vitreous floaters [Unknown]
  - Foreign body in eye [Unknown]
